FAERS Safety Report 14138891 (Version 3)
Quarter: 2018Q1

REPORT INFORMATION
  Report Type: Spontaneous
  Country: FI (occurrence: FI)
  Receive Date: 20171027
  Receipt Date: 20180330
  Transmission Date: 20180508
  Serious: Yes (Other)
  Sender: FDA-Public Use
  Company Number: FI-009507513-1709FIN002364

PATIENT
  Age: 66 Year
  Sex: Female

DRUGS (2)
  1. ESTRADOT [Concomitant]
     Active Substance: ESTRADIOL
     Dosage: 25 MICROGRAM, Q24H
     Route: 062
  2. EZETROL [Suspect]
     Active Substance: EZETIMIBE
     Indication: HYPERCHOLESTEROLAEMIA
     Dosage: 10MG, DAILY
     Route: 048
     Dates: start: 2017, end: 20170715

REACTIONS (4)
  - Demyelination [Unknown]
  - Fatigue [Unknown]
  - Axonal neuropathy [Unknown]
  - Peroneal nerve injury [Unknown]

NARRATIVE: CASE EVENT DATE: 20170101
